FAERS Safety Report 10089028 (Version 1)
Quarter: 2014Q2

REPORT INFORMATION
  Report Type: Spontaneous
  Country: US (occurrence: None)
  Receive Date: 20140418
  Receipt Date: 20140418
  Transmission Date: 20141212
  Serious: Yes (Other)
  Sender: FDA-Public Use
  Company Number: None

PATIENT
  Age: 62 Year
  Sex: Female
  Weight: 71.22 kg

DRUGS (8)
  1. VENLAFAXINE HCL [Suspect]
     Indication: ANXIETY
     Dosage: 75 MG. EACH CAPSULE, 270 (FOR 3 MO.), ONCE EVERY MORNING, BY MOUTH
     Route: 048
     Dates: start: 20140310, end: 20140314
  2. EFFIXOR XR (225 MG) [Concomitant]
  3. KLONOPIN (3 MG) [Concomitant]
  4. GEODONE (40 MG) [Concomitant]
  5. LANICTAL (200 MG) [Concomitant]
  6. ZYRTEC (10 MG) [Concomitant]
  7. VIT D2 (1.25 MG/50,000 UNITS [Concomitant]
  8. MEXETONIN, 5 MG [Concomitant]

REACTIONS (6)
  - Anxiety [None]
  - Tremor [None]
  - Nervousness [None]
  - Hunger [None]
  - Product quality issue [None]
  - Product formulation issue [None]
